FAERS Safety Report 25079137 (Version 2)
Quarter: 2025Q1

REPORT INFORMATION
  Report Type: Spontaneous
  Country: NL (occurrence: NL)
  Receive Date: 20250314
  Receipt Date: 20250319
  Transmission Date: 20250408
  Serious: No
  Sender: NOVARTIS
  Company Number: NL-002147023-NVSC2025NL039470

PATIENT
  Sex: Male

DRUGS (1)
  1. LEQVIO [Suspect]
     Active Substance: INCLISIRAN SODIUM
     Indication: Hypercholesterolaemia
     Route: 065

REACTIONS (2)
  - Viral test [Unknown]
  - Hypertriglyceridaemia [Unknown]
